FAERS Safety Report 8358913-4 (Version None)
Quarter: 2012Q2

REPORT INFORMATION
  Report Type: 
  Country: None (occurrence: None)
  Receive Date: 20120515
  Receipt Date: 20120507
  Transmission Date: 20120825
  Serious: No
  Sender: FDA-Public Use
  Company Number: US-BIOGENIDEC-2012BI013487

PATIENT
  Age: 43 Year
  Sex: Female

DRUGS (1)
  1. TYSABRI [Suspect]
     Indication: MULTIPLE SCLEROSIS
     Route: 042
     Dates: start: 20110830, end: 20120313

REACTIONS (5)
  - PARAESTHESIA [None]
  - BACK PAIN [None]
  - FLUSHING [None]
  - PAIN IN EXTREMITY [None]
  - NAUSEA [None]
